FAERS Safety Report 12204792 (Version 1)
Quarter: 2016Q1

REPORT INFORMATION
  Report Type: Report from Study
  Country: US (occurrence: US)
  Receive Date: 20160323
  Receipt Date: 20160323
  Transmission Date: 20160526
  Serious: No
  Sender: FDA-Public Use
  Company Number: US-MDT-ADR-2016-00488

PATIENT
  Age: 67 Year
  Sex: Male

DRUGS (5)
  1. BUPIVACAINE [Suspect]
     Active Substance: BUPIVACAINE
     Dosage: 5.295 MG/DAY
     Route: 037
  2. MORPHINE [Concomitant]
     Active Substance: MORPHINE
  3. COMPOUNDED BACLOFEN [Suspect]
     Active Substance: BACLOFEN
     Dosage: 264.8MCG/DAY
     Route: 037
  4. MORPHINE [Suspect]
     Active Substance: MORPHINE
     Dosage: 3.971 MG/DAY
     Route: 037
  5. CLONIDINE. [Suspect]
     Active Substance: CLONIDINE
     Dosage: 132.38 MCG/DAY
     Route: 037

REACTIONS (2)
  - Adverse drug reaction [Recovered/Resolved]
  - Fatigue [Recovered/Resolved]
